FAERS Safety Report 10696409 (Version 3)
Quarter: 2015Q2

REPORT INFORMATION
  Report Type: Spontaneous
  Country: US (occurrence: US)
  Receive Date: 20150107
  Receipt Date: 20150406
  Transmission Date: 20150821
  Serious: Yes (Disabling)
  Sender: FDA-Public Use
  Company Number: US-009507513-1205USA01841

PATIENT
  Sex: Male
  Weight: 75.74 kg

DRUGS (2)
  1. FINASTERIDE. [Suspect]
     Active Substance: FINASTERIDE
     Indication: ALOPECIA
     Dosage: UNK
     Route: 048
     Dates: start: 201101, end: 201112
  2. PROPECIA [Suspect]
     Active Substance: FINASTERIDE
     Indication: ALOPECIA
     Dosage: 1 MG, QD
     Route: 048
     Dates: start: 2010, end: 2012

REACTIONS (32)
  - Cognitive disorder [Not Recovered/Not Resolved]
  - Depression [Not Recovered/Not Resolved]
  - Self esteem decreased [Unknown]
  - Thyroxine free increased [Unknown]
  - Temperature intolerance [Unknown]
  - Snoring [Unknown]
  - Sexual dysfunction [Not Recovered/Not Resolved]
  - Ejaculation disorder [Not Recovered/Not Resolved]
  - Nausea [Unknown]
  - Hypogonadism [Unknown]
  - Chills [Unknown]
  - Pain [Not Recovered/Not Resolved]
  - Irritability [Unknown]
  - Mood swings [Unknown]
  - Insomnia [Unknown]
  - Asthenia [Unknown]
  - Myalgia [Unknown]
  - Ejaculation failure [Not Recovered/Not Resolved]
  - Partner stress [Unknown]
  - Weight decreased [Unknown]
  - Vitamin D deficiency [Unknown]
  - Erectile dysfunction [Not Recovered/Not Resolved]
  - Joint stiffness [Unknown]
  - Formication [Unknown]
  - Skin hypertrophy [Unknown]
  - Skin disorder [Unknown]
  - Anxiety [Not Recovered/Not Resolved]
  - Libido decreased [Not Recovered/Not Resolved]
  - Fatigue [Unknown]
  - Disturbance in attention [Unknown]
  - Somnolence [Unknown]
  - Appetite disorder [Unknown]

NARRATIVE: CASE EVENT DATE: 201009
